FAERS Safety Report 23319490 (Version 1)
Quarter: 2023Q4

REPORT INFORMATION
  Report Type: Spontaneous
  Country: US (occurrence: US)
  Receive Date: 20231220
  Receipt Date: 20231220
  Transmission Date: 20240110
  Serious: No
  Sender: FDA-Public Use
  Company Number: US-BIOGEN-2022BI01120229

PATIENT
  Sex: Female

DRUGS (4)
  1. VUMERITY [Suspect]
     Active Substance: DIROXIMEL FUMARATE
     Indication: Multiple sclerosis
     Route: 050
     Dates: start: 20211207
  2. AMBIEN [Concomitant]
     Active Substance: ZOLPIDEM TARTRATE
     Route: 050
  3. LISINOPRIL [Concomitant]
     Active Substance: LISINOPRIL
     Route: 050
  4. LEVETIRACETAM [Concomitant]
     Active Substance: LEVETIRACETAM
     Route: 050

REACTIONS (9)
  - Expired product administered [Unknown]
  - Fatigue [Unknown]
  - Brain fog [Unknown]
  - Multiple sclerosis [Unknown]
  - Pain [Unknown]
  - Hypoaesthesia [Unknown]
  - Mental impairment [Unknown]
  - Impatience [Unknown]
  - Stress [Unknown]
